FAERS Safety Report 7846858-5 (Version None)
Quarter: 2011Q4

REPORT INFORMATION
  Report Type: 
  Country: None (occurrence: None)
  Receive Date: 20111025
  Receipt Date: 20111010
  Transmission Date: 20120403
  Serious: Yes (Death, Hospitalization, Other)
  Sender: FDA-Public Use
  Company Number: US-BAXTER-2009BH018587

PATIENT
  Age: 51 Year
  Sex: Male
  Weight: 99 kg

DRUGS (21)
  1. LASIX [Concomitant]
     Indication: PRODUCT USED FOR UNKNOWN INDICATION
     Route: 065
  2. TACROLIMUS [Concomitant]
     Indication: PRODUCT USED FOR UNKNOWN INDICATION
     Route: 065
  3. HEPARIN SODIUM INJECTION [Suspect]
     Indication: HAEMODIALYSIS
     Route: 042
     Dates: start: 20080213, end: 20080217
  4. HEPARIN SODIUM 1,000 UNITS AND SODIUM CHLORIDE 0.9% [Suspect]
     Indication: ATRIAL FIBRILLATION
     Route: 042
     Dates: start: 20080214, end: 20080214
  5. PRAVASTATIN [Concomitant]
     Indication: PRODUCT USED FOR UNKNOWN INDICATION
     Route: 065
  6. HEPARIN SODIUM INJECTION [Suspect]
     Route: 042
     Dates: start: 20080301, end: 20081017
  7. PROGRAF [Concomitant]
     Indication: PRODUCT USED FOR UNKNOWN INDICATION
     Route: 065
  8. DOXAZOSIN MESYLATE [Concomitant]
     Indication: PRODUCT USED FOR UNKNOWN INDICATION
     Route: 065
  9. PREDNISONE [Concomitant]
     Indication: PRODUCT USED FOR UNKNOWN INDICATION
     Route: 065
  10. AMBIEN [Concomitant]
     Indication: PRODUCT USED FOR UNKNOWN INDICATION
     Route: 065
  11. METOPROLOL TARTRATE [Concomitant]
     Indication: PRODUCT USED FOR UNKNOWN INDICATION
     Route: 065
  12. HEPARIN SODIUM INJECTION [Suspect]
     Indication: PROPHYLAXIS
     Route: 042
     Dates: start: 20080213, end: 20080217
  13. MYCOPHENOLATE MOFETIL (CELLCEPT) [Concomitant]
     Indication: PRODUCT USED FOR UNKNOWN INDICATION
     Route: 065
  14. ASPIRIN [Concomitant]
     Indication: PRODUCT USED FOR UNKNOWN INDICATION
     Route: 065
  15. SIMETHICONE [Concomitant]
     Indication: PRODUCT USED FOR UNKNOWN INDICATION
     Route: 065
  16. HEPARIN SODIUM 1,000 UNITS AND SODIUM CHLORIDE 0.9% [Suspect]
     Route: 042
     Dates: start: 20080215, end: 20080217
  17. CORDARONE [Concomitant]
     Indication: PRODUCT USED FOR UNKNOWN INDICATION
     Route: 065
  18. HEPARIN SODIUM INJECTION [Suspect]
     Route: 042
     Dates: start: 20080301, end: 20081017
  19. SEVELAMER HYDROCHLORIDE [Concomitant]
     Indication: PRODUCT USED FOR UNKNOWN INDICATION
     Route: 065
  20. POTASSIUM CHLORIDE [Concomitant]
     Indication: PRODUCT USED FOR UNKNOWN INDICATION
     Route: 065
  21. WARFARIN SODIUM [Concomitant]
     Indication: PRODUCT USED FOR UNKNOWN INDICATION
     Route: 065

REACTIONS (30)
  - FLUID OVERLOAD [None]
  - PLEURITIC PAIN [None]
  - VOMITING [None]
  - DYSPNOEA [None]
  - RENAL IMPAIRMENT [None]
  - ASTHENIA [None]
  - AZOTAEMIA [None]
  - DIARRHOEA [None]
  - COUGH [None]
  - PAIN [None]
  - CORONARY ARTERY DISEASE [None]
  - TACHYCARDIA [None]
  - ABDOMINAL DISTENSION [None]
  - PYREXIA [None]
  - PAIN IN EXTREMITY [None]
  - HEADACHE [None]
  - HYPOKINESIA [None]
  - DIZZINESS [None]
  - CARDIAC ARREST [None]
  - CARDIAC FAILURE [None]
  - RENAL FAILURE [None]
  - MYALGIA [None]
  - WEIGHT INCREASED [None]
  - HYPERPHOSPHATAEMIA [None]
  - NAUSEA [None]
  - OEDEMA PERIPHERAL [None]
  - HYPOTENSION [None]
  - MALAISE [None]
  - FATIGUE [None]
  - ACUTE PRERENAL FAILURE [None]
